FAERS Safety Report 5103100-6 (Version None)
Quarter: 2006Q3

REPORT INFORMATION
  Report Type: 
  Country: None (occurrence: None)
  Receive Date: 20060908
  Receipt Date: 20060823
  Transmission Date: 20061208
  Serious: Yes (Life-Threatening)
  Sender: FDA-Public Use
  Company Number: S06-ITA-03575-01

PATIENT
  Sex: Female

DRUGS (1)
  1. MEMANTINE HCL [Suspect]

REACTIONS (1)
  - CEREBRAL ISCHAEMIA [None]
